FAERS Safety Report 23048048 (Version 3)
Quarter: 2023Q4

REPORT INFORMATION
  Report Type: Spontaneous
  Country: US (occurrence: US)
  Receive Date: 20231010
  Receipt Date: 20231226
  Transmission Date: 20240110
  Serious: No
  Sender: FDA-Public Use
  Company Number: US-BRISTOL-MYERS SQUIBB COMPANY-2023-141544

PATIENT
  Age: 76 Year
  Sex: Female
  Weight: 66.32 kg

DRUGS (1)
  1. LENALIDOMIDE [Suspect]
     Active Substance: LENALIDOMIDE
     Indication: Plasma cell myeloma
     Route: 048
     Dates: start: 20220323

REACTIONS (2)
  - Protein total increased [Not Recovered/Not Resolved]
  - Monoclonal immunoglobulin present [Unknown]

NARRATIVE: CASE EVENT DATE: 20230401
